FAERS Safety Report 9464473 (Version 3)
Quarter: 2013Q3

REPORT INFORMATION
  Report Type: Spontaneous
  Country: BR (occurrence: BR)
  Receive Date: 20130819
  Receipt Date: 20130830
  Transmission Date: 20140515
  Serious: Yes (Other)
  Sender: FDA-Public Use
  Company Number: BR-LUNDBECK-DKLU1092120

PATIENT
  Sex: Female

DRUGS (11)
  1. ONFI [Suspect]
     Indication: CONVULSION
     Route: 048
     Dates: start: 201306
  2. ONFI [Suspect]
     Route: 048
  3. MIRTAZAPINE [Suspect]
     Indication: DEPRESSION
     Route: 048
  4. MIRTAZAPINE [Suspect]
     Route: 048
     Dates: start: 201306
  5. MIRTAZAPINE [Suspect]
     Route: 048
  6. GARDENAL [Concomitant]
     Indication: EPILEPSY
  7. TEGRETOL [Concomitant]
     Indication: EPILEPSY
  8. AMLODIPINE/TELMISARTAN [Concomitant]
     Indication: HYPERTENSION
     Dates: start: 2012
  9. VALSARTAN [Concomitant]
     Indication: PRODUCT USED FOR UNKNOWN INDICATION
     Dates: start: 2011
  10. OMEPRAZOLE [Concomitant]
     Indication: GASTRITIS
     Dates: start: 2008
  11. RIVOTRIL [Concomitant]
     Indication: CONVULSION

REACTIONS (7)
  - Convulsion [Recovered/Resolved]
  - Memory impairment [Unknown]
  - Dizziness [Not Recovered/Not Resolved]
  - Gait disturbance [Recovering/Resolving]
  - Depression [Recovering/Resolving]
  - Somnolence [Recovering/Resolving]
  - Insomnia [Not Recovered/Not Resolved]
